FAERS Safety Report 20309032 (Version 1)
Quarter: 2022Q1

REPORT INFORMATION
  Report Type: Spontaneous
  Country: US (occurrence: None)
  Receive Date: 20220106
  Receipt Date: 20220106
  Transmission Date: 20220423
  Serious: No
  Sender: FDA-Public Use
  Company Number: None

PATIENT
  Sex: Female

DRUGS (1)
  1. COPAXONE [Suspect]
     Active Substance: GLATIRAMER ACETATE
     Indication: Multiple sclerosis
     Dosage: 40MG INJECT  ONE SYRINGE SUB INJECTION?
     Route: 030
     Dates: start: 20210901, end: 20220106

REACTIONS (2)
  - Anaphylactic shock [None]
  - Dyspnoea [None]
